FAERS Safety Report 17891902 (Version 1)
Quarter: 2020Q2

REPORT INFORMATION
  Report Type: Spontaneous
  Country: KR (occurrence: KR)
  Receive Date: 20200612
  Receipt Date: 20200612
  Transmission Date: 20200714
  Serious: Yes (Other)
  Sender: FDA-Public Use
  Company Number: NVSC2020KR163494

PATIENT
  Age: 11 Year
  Sex: Female

DRUGS (2)
  1. EVEROLIMUS. [Suspect]
     Active Substance: EVEROLIMUS
     Indication: TRANSPLANT REJECTION
     Dosage: 5-8 NG/ML
     Route: 065
  2. EVEROLIMUS. [Suspect]
     Active Substance: EVEROLIMUS
     Dosage: 3-5 NG/ML
     Route: 065

REACTIONS (4)
  - Cholecystitis [Unknown]
  - Tissue injury [Unknown]
  - Portal tract inflammation [Unknown]
  - Hepatic fibrosis [Unknown]
